APPROVED DRUG PRODUCT: SULFAMETHOXAZOLE AND TRIMETHOPRIM
Active Ingredient: SULFAMETHOXAZOLE; TRIMETHOPRIM
Strength: 400MG;80MG
Dosage Form/Route: TABLET;ORAL
Application: A071299 | Product #001
Applicant: INTERPHARM INC
Approved: Oct 27, 1987 | RLD: No | RS: No | Type: DISCN